FAERS Safety Report 14198090 (Version 1)
Quarter: 2017Q4

REPORT INFORMATION
  Report Type: Spontaneous
  Country: US (occurrence: US)
  Receive Date: 20171116
  Receipt Date: 20171116
  Transmission Date: 20180321
  Serious: Yes (Life-Threatening, Hospitalization, Other)
  Sender: FDA-Public Use
  Company Number: None

PATIENT
  Sex: Male
  Weight: 76.05 kg

DRUGS (5)
  1. FOLIC ACID. [Concomitant]
     Active Substance: FOLIC ACID
  2. DIALTEMZEM [Concomitant]
  3. PANTOPRAZOLE [Suspect]
     Active Substance: PANTOPRAZOLE
     Indication: EATING DISORDER
     Dosage: ?          QUANTITY:1 TABLET(S);?
     Route: 048
     Dates: start: 20171005, end: 20171112
  4. MULTIVITAMIN [Concomitant]
     Active Substance: VITAMINS
  5. COUMADIN [Concomitant]
     Active Substance: WARFARIN SODIUM

REACTIONS (5)
  - Scab [None]
  - Arthralgia [None]
  - Rash [None]
  - Stevens-Johnson syndrome [None]
  - Atrial flutter [None]

NARRATIVE: CASE EVENT DATE: 20171112
